FAERS Safety Report 19766516 (Version 1)
Quarter: 2021Q3

REPORT INFORMATION
  Report Type: Spontaneous
  Country: US (occurrence: US)
  Receive Date: 20210831
  Receipt Date: 20210831
  Transmission Date: 20211014
  Serious: Yes (Other)
  Sender: FDA-Public Use
  Company Number: US-LUPIN PHARMACEUTICALS INC.-2021-15879

PATIENT
  Sex: Female

DRUGS (8)
  1. NP THYROID [Concomitant]
     Active Substance: LEVOTHYROXINE\LIOTHYRONINE
     Dosage: UNK (CHANGED TO 15 MG FOR 2 DAYS, THEN 30 MG 2 DAYS REPEATING 2 DAYS SCHEDULE)
     Route: 048
     Dates: start: 202101
  2. NEXIUM [Concomitant]
     Active Substance: ESOMEPRAZOLE MAGNESIUM
     Indication: GASTROOESOPHAGEAL REFLUX DISEASE
     Dosage: UNK
     Route: 065
  3. LEVOTHYROXINE SODIUM TABLETS [Suspect]
     Active Substance: LEVOTHYROXINE SODIUM
     Indication: HYPOTHYROIDISM
     Dosage: UNK
     Route: 065
  4. NP THYROID [Concomitant]
     Active Substance: LEVOTHYROXINE\LIOTHYRONINE
     Dosage: 30 MILLIGRAM, QOD
     Route: 048
     Dates: start: 201901
  5. NP THYROID [Concomitant]
     Active Substance: LEVOTHYROXINE\LIOTHYRONINE
     Dosage: UNK (15 MG FOR 2 DAYS, 30 MG FOR ONE DAY, 15 MG FOR 2 DAYS/ONE DAY CYCLE)
     Route: 048
     Dates: start: 201904
  6. NP THYROID [Concomitant]
     Active Substance: LEVOTHYROXINE\LIOTHYRONINE
     Indication: HYPOTHYROIDISM
     Dosage: 15 MILLIGRAM, QD
     Route: 048
     Dates: start: 201809
  7. NP THYROID [Concomitant]
     Active Substance: LEVOTHYROXINE\LIOTHYRONINE
     Dosage: 30 MILLIGRAM, QD
     Route: 048
     Dates: start: 201901
  8. NP THYROID [Concomitant]
     Active Substance: LEVOTHYROXINE\LIOTHYRONINE
     Dosage: 15 MILLIGRAM, QD
     Route: 048
     Dates: start: 201901

REACTIONS (5)
  - Peripheral coldness [Unknown]
  - Hypersensitivity [Unknown]
  - Gait disturbance [Unknown]
  - Neuropathy peripheral [Unknown]
  - Lip swelling [Unknown]
